FAERS Safety Report 5703876-0 (Version None)
Quarter: 2008Q2

REPORT INFORMATION
  Report Type: 
  Country: None (occurrence: None)
  Receive Date: 20080414
  Receipt Date: 20080404
  Transmission Date: 20081010
  Serious: Yes (Hospitalization)
  Sender: FDA-Public Use
  Company Number: US-ELI_LILLY_AND_COMPANY-US200803000332

PATIENT
  Sex: Male

DRUGS (12)
  1. ZYPREXA [Suspect]
     Indication: DEPRESSION
     Dosage: 20 MG, UNK
     Dates: start: 19960101
  2. ZYPREXA [Suspect]
     Dosage: 10 MG, 3/D
     Dates: end: 20000101
  3. SEROQUEL [Concomitant]
  4. PAXIL [Concomitant]
  5. GEODON [Concomitant]
  6. DEPAKOTE [Concomitant]
  7. AMBIEN [Concomitant]
  8. HALOPERIDOL [Concomitant]
  9. RISPERDAL [Concomitant]
  10. NITROGLYCERIN [Concomitant]
  11. ATIVAN [Concomitant]
  12. XANAX [Concomitant]

REACTIONS (6)
  - DIABETES MELLITUS [None]
  - DIABETIC COMA [None]
  - HYPERGLYCAEMIA [None]
  - LEUKAEMIA [None]
  - MYOCARDIAL INFARCTION [None]
  - RENAL FAILURE [None]
